FAERS Safety Report 7809749-1 (Version None)
Quarter: 2011Q4

REPORT INFORMATION
  Report Type: 
  Country: None (occurrence: None)
  Receive Date: 20111012
  Receipt Date: 20111004
  Transmission Date: 20120403
  Serious: Yes (Hospitalization)
  Sender: FDA-Public Use
  Company Number: JP-CEPHALON-2011003826

PATIENT
  Sex: Male
  Weight: 66 kg

DRUGS (7)
  1. MIGLITOL [Concomitant]
     Dates: start: 20110225
  2. SULFAMETHOXAZOLE AND TRIMETHOPRIM [Concomitant]
  3. BENDAMUSTINE HCL [Suspect]
     Indication: MANTLE CELL LYMPHOMA
     Route: 042
     Dates: start: 20110209, end: 20110210
  4. CELECOXIB [Concomitant]
  5. METFORMIN HCL [Concomitant]
  6. LANSOPRAZOLE [Concomitant]
  7. MAGNESIUM OXIDE [Concomitant]

REACTIONS (3)
  - THROMBOCYTOPENIA [None]
  - NEUTROPENIA [None]
  - APLASIA PURE RED CELL [None]
